FAERS Safety Report 5684289-7 (Version None)
Quarter: 2008Q1

REPORT INFORMATION
  Report Type: 
  Country: None (occurrence: None)
  Receive Date: 20080327
  Receipt Date: 20080327
  Transmission Date: 20080703
  Serious: Yes (Hospitalization)
  Sender: FDA-Public Use
  Company Number: None

PATIENT
  Age: 77 Year
  Sex: Male
  Weight: 84 kg

DRUGS (2)
  1. CLOPIDOGREL [Suspect]
     Dosage: 75MG  EVERY DAY  PO
     Route: 048
     Dates: start: 20050413, end: 20080103
  2. ASPIRIN [Suspect]
     Dosage: 81MG  EVERY DAY  PO
     Route: 048
     Dates: start: 20050413, end: 20080103

REACTIONS (1)
  - GASTRIC ULCER HAEMORRHAGE [None]
